FAERS Safety Report 6059948-7 (Version None)
Quarter: 2009Q1

REPORT INFORMATION
  Report Type: 
  Country: None (occurrence: None)
  Receive Date: 20090130
  Receipt Date: 20090119
  Transmission Date: 20090719
  Serious: Yes (Life-Threatening)
  Sender: FDA-Public Use
  Company Number: FR-ROCHE-610901

PATIENT
  Sex: Male

DRUGS (16)
  1. VALIUM [Suspect]
     Indication: DRUG USE FOR UNKNOWN INDICATION
     Dosage: DOSAGE REGIMEN: 1 DOSE 4 TI.
     Route: 048
     Dates: end: 20081124
  2. RIVOTRIL [Suspect]
     Indication: DRUG USE FOR UNKNOWN INDICATION
     Dosage: DOSAGE REGIMEN: 10 DROPS 1 TI.
     Route: 048
     Dates: end: 20081124
  3. OXYNORM [Suspect]
     Indication: DRUG USE FOR UNKNOWN INDICATION
     Dosage: DOSAGE REGIMEN: 1 DOSE PER.
     Route: 048
     Dates: start: 20081123, end: 20081124
  4. OXYCONTIN [Suspect]
     Indication: DRUG USE FOR UNKNOWN INDICATION
     Dosage: DOSAGE REGIMEN: UNKNOWN.
     Route: 065
  5. LYRICA [Concomitant]
  6. ZOCOR [Concomitant]
  7. XATRAL [Concomitant]
  8. KARDEGIC [Concomitant]
  9. AMLOR [Concomitant]
  10. CEBUTID [Concomitant]
  11. COZAAR [Concomitant]
  12. DETENSIEL [Concomitant]
  13. DIAMICRON [Concomitant]
  14. FORLAX [Concomitant]
  15. IKOREL [Concomitant]
  16. INIPOMP [Concomitant]

REACTIONS (4)
  - COMA [None]
  - MIOSIS [None]
  - OLIGURIA [None]
  - RESPIRATORY DISTRESS [None]
